FAERS Safety Report 9371998 (Version 1)
Quarter: 2013Q2

REPORT INFORMATION
  Report Type: Report from Study
  Country: US (occurrence: US)
  Receive Date: 20130627
  Receipt Date: 20130627
  Transmission Date: 20140414
  Serious: Yes (Other)
  Sender: FDA-Public Use
  Company Number: US-MYLANLABS-2012S1012168

PATIENT
  Age: 66 Year
  Sex: Female
  Weight: 44.5 kg

DRUGS (15)
  1. CLOZAPINE TABLETS [Suspect]
     Indication: SCHIZOAFFECTIVE DISORDER BIPOLAR TYPE
     Route: 048
     Dates: start: 20120509, end: 20120609
  2. CLOZAPINE TABLETS [Suspect]
     Indication: MANIA
     Route: 048
     Dates: start: 20120509, end: 20120609
  3. CLOZAPINE TABLETS [Suspect]
     Indication: PSYCHOTIC DISORDER
     Route: 048
     Dates: start: 20120509, end: 20120609
  4. CLOZAPINE TABLETS [Suspect]
     Indication: SCHIZOAFFECTIVE DISORDER BIPOLAR TYPE
     Route: 048
  5. CLOZAPINE TABLETS [Suspect]
     Indication: MANIA
     Route: 048
  6. CLOZAPINE TABLETS [Suspect]
     Indication: PSYCHOTIC DISORDER
     Route: 048
  7. CLOZAPINE TABLETS [Suspect]
     Indication: SCHIZOAFFECTIVE DISORDER BIPOLAR TYPE
     Route: 048
  8. CLOZAPINE TABLETS [Suspect]
     Indication: MANIA
     Route: 048
  9. CLOZAPINE TABLETS [Suspect]
     Indication: PSYCHOTIC DISORDER
     Route: 048
  10. LEVOTHYROXINE [Concomitant]
     Indication: HYPOTHYROIDISM
     Route: 048
  11. VITAMIN D3 [Concomitant]
     Indication: OSTEOPOROSIS
  12. CALCIUM CARBONATE [Concomitant]
     Route: 048
  13. DIAZEPAM [Concomitant]
     Indication: MANIA
     Dosage: PRN
     Route: 048
  14. ABILIFY [Concomitant]
     Indication: SCHIZOAFFECTIVE DISORDER BIPOLAR TYPE
     Route: 048
  15. LORAZEPAM [Concomitant]
     Indication: INSOMNIA
     Route: 048

REACTIONS (2)
  - Granulocytopenia [Recovered/Resolved]
  - Leukopenia [Not Recovered/Not Resolved]
